FAERS Safety Report 20057086 (Version 1)
Quarter: 2021Q4

REPORT INFORMATION
  Report Type: Spontaneous
  Country: US (occurrence: None)
  Receive Date: 20211111
  Receipt Date: 20211111
  Transmission Date: 20220303
  Serious: No
  Sender: FDA-Public Use
  Company Number: 2021A785694

PATIENT
  Sex: Female
  Weight: 54.4 kg

DRUGS (3)
  1. LYNPARZA [Suspect]
     Active Substance: OLAPARIB
     Indication: Cancer cells urine present
     Route: 048
  2. LYNPARZA [Suspect]
     Active Substance: OLAPARIB
     Indication: Cancer cells urine present
     Route: 048
  3. PROCHLORPERAZINE [Concomitant]
     Active Substance: PROCHLORPERAZINE

REACTIONS (8)
  - Nasal discomfort [Recovering/Resolving]
  - Gastrointestinal disorder [Recovered/Resolved]
  - Eating disorder [Recovered/Resolved]
  - Abdominal pain [Recovered/Resolved]
  - Renal disorder [Recovered/Resolved]
  - Ill-defined disorder [Recovered/Resolved]
  - Nausea [Recovered/Resolved]
  - Cough [Recovered/Resolved]
